FAERS Safety Report 9749956 (Version 2)
Quarter: 2014Q1

REPORT INFORMATION
  Report Type: Spontaneous
  Country: GB (occurrence: GB)
  Receive Date: 20131212
  Receipt Date: 20140225
  Transmission Date: 20141002
  Serious: Yes (Other)
  Sender: FDA-Public Use
  Company Number: PHHY2013GB145184

PATIENT
  Age: 76 Year
  Sex: Female

DRUGS (1)
  1. DICLOFENAC [Suspect]
     Indication: OSTEOARTHRITIS
     Dosage: 75 MG, BID

REACTIONS (4)
  - Gastrointestinal disorder [Recovered/Resolved]
  - Large intestinal ulcer [Recovered/Resolved]
  - Ulcer [Recovered/Resolved]
  - Hiatus hernia [Recovered/Resolved]
